FAERS Safety Report 21575760 (Version 1)
Quarter: 2022Q4

REPORT INFORMATION
  Report Type: Spontaneous
  Country: US (occurrence: US)
  Receive Date: 20221110
  Receipt Date: 20221110
  Transmission Date: 20230112
  Serious: Yes (Other)
  Sender: FDA-Public Use
  Company Number: US-ABBVIE-4194130

PATIENT
  Age: 5 Year
  Sex: Female

DRUGS (1)
  1. DEPAKOTE [Suspect]
     Active Substance: DIVALPROEX SODIUM
     Indication: Product used for unknown indication
     Dosage: FOR ABOUT TWO YEARS
     Route: 065

REACTIONS (3)
  - Sensory processing disorder [Unknown]
  - Epilepsy [Unknown]
  - Influenza [Unknown]
